FAERS Safety Report 22355860 (Version 1)
Quarter: 2023Q2

REPORT INFORMATION
  Report Type: Spontaneous
  Country: US (occurrence: None)
  Receive Date: 20230523
  Receipt Date: 20230523
  Transmission Date: 20230721
  Serious: Yes (Hospitalization)
  Sender: FDA-Public Use
  Company Number: None

PATIENT
  Age: 42 Year
  Sex: Female
  Weight: 51.98 kg

DRUGS (8)
  1. CAPECITABINE [Suspect]
     Active Substance: CAPECITABINE
     Indication: Breast cancer female
     Dosage: 1000MG TWICE DAILY ORAL?
     Route: 048
     Dates: start: 20230519
  2. BACLOFEN [Concomitant]
     Active Substance: BACLOFEN
  3. DEXAMETHASONE [Concomitant]
  4. HERCEPTIN [Concomitant]
  5. ONDANSETRON [Concomitant]
  6. OXYCODONE [Concomitant]
  7. TUKYSA [Concomitant]
     Active Substance: TUCATINIB
  8. VENLAFAXINE [Concomitant]

REACTIONS (2)
  - Malignant neoplasm progression [None]
  - Breast cancer female [None]

NARRATIVE: CASE EVENT DATE: 20230519
